FAERS Safety Report 9852457 (Version 2)
Quarter: 2014Q1

REPORT INFORMATION
  Report Type: Spontaneous
  Country: US (occurrence: US)
  Receive Date: 20140129
  Receipt Date: 20140129
  Transmission Date: 20141002
  Serious: Yes (Other)
  Sender: FDA-Public Use
  Company Number: US-SA-2014SA009633

PATIENT
  Age: 75 Year
  Sex: Female

DRUGS (3)
  1. MULTAQ [Suspect]
     Indication: ARRHYTHMIA
     Route: 048
  2. CARVEDILOL [Concomitant]
     Indication: BLOOD PRESSURE
     Route: 048
  3. LIPITOR [Concomitant]
     Route: 065

REACTIONS (13)
  - Cardiac failure [Not Recovered/Not Resolved]
  - Dyspnoea [Not Recovered/Not Resolved]
  - Dyspnoea [Not Recovered/Not Resolved]
  - Fatigue [Not Recovered/Not Resolved]
  - Oedema peripheral [Not Recovered/Not Resolved]
  - Dizziness [Not Recovered/Not Resolved]
  - Nausea [Not Recovered/Not Resolved]
  - Gait disturbance [Not Recovered/Not Resolved]
  - Fatigue [Not Recovered/Not Resolved]
  - Weight increased [Not Recovered/Not Resolved]
  - Hypotension [Unknown]
  - Insomnia [Unknown]
  - Asthenia [Unknown]
